FAERS Safety Report 15321942 (Version 1)
Quarter: 2018Q3

REPORT INFORMATION
  Report Type: Spontaneous
  Country: FR (occurrence: FR)
  Receive Date: 20180827
  Receipt Date: 20180827
  Transmission Date: 20181010
  Serious: Yes (Hospitalization)
  Sender: FDA-Public Use
  Company Number: FR-PFIZER INC-2018337892

PATIENT
  Age: 58 Year
  Sex: Male
  Weight: 66 kg

DRUGS (4)
  1. ETOPOPHOS [Suspect]
     Active Substance: ETOPOSIDE PHOSPHATE
     Indication: T-CELL LYMPHOMA
     Dosage: 716 MG, 1X/DAY
     Route: 041
     Dates: start: 20180711, end: 20180714
  2. BICNU [Concomitant]
     Active Substance: CARMUSTINE
     Indication: T-CELL LYMPHOMA
     Dosage: 537 MG, 1X/DAY
     Route: 041
     Dates: start: 20180710, end: 20180710
  3. CYTARABINE. [Suspect]
     Active Substance: CYTARABINE
     Indication: T-CELL LYMPHOMA
     Dosage: 716 MG, 1X/DAY
     Route: 041
     Dates: start: 20180711, end: 20180714
  4. ALKERAN [MELPHALAN] [Concomitant]
     Indication: T-CELL LYMPHOMA
     Dosage: 250.6 MG, 1X/DAY
     Dates: start: 20180715, end: 20180715

REACTIONS (1)
  - Erythema [Recovering/Resolving]

NARRATIVE: CASE EVENT DATE: 20180714
